FAERS Safety Report 18822515 (Version 2)
Quarter: 2021Q1

REPORT INFORMATION
  Report Type: Other
  Country: US (occurrence: US)
  Receive Date: 20210202
  Receipt Date: 20210324
  Transmission Date: 20210419
  Serious: Yes (Death)
  Sender: FDA-Public Use
  Company Number: US-ROCHE-2754935

PATIENT
  Age: 77 Year
  Sex: Female

DRUGS (4)
  1. OCREVUS [Suspect]
     Active Substance: OCRELIZUMAB
     Indication: PRIMARY PROGRESSIVE MULTIPLE SCLEROSIS
     Dosage: INFUSE 300 MG EVERY 2 WEEKS TWICE THEN INFUSE 600 MG EVERY 6 MONTHS?DATE OF TREATMENT: 19/AUG/2019,
     Route: 042
     Dates: end: 202008
  2. LISINOPRIL. [Concomitant]
     Active Substance: LISINOPRIL
  3. OCREVUS [Suspect]
     Active Substance: OCRELIZUMAB
     Indication: RELAPSING-REMITTING MULTIPLE SCLEROSIS
     Dosage: (PRESCRIBED AS 300 MG ON DAY 1 AND DAY 15 AND 600 MG ONCE IN 6 MONTHS)?SHE HAD A TOTAL OF 4 INFUSION
     Route: 042
     Dates: start: 201909, end: 20200821
  4. XANAX [Concomitant]
     Active Substance: ALPRAZOLAM

REACTIONS (1)
  - Pancreatic carcinoma [Fatal]

NARRATIVE: CASE EVENT DATE: 20210107
